FAERS Safety Report 6165231-1 (Version None)
Quarter: 2009Q2

REPORT INFORMATION
  Report Type: 
  Country: None (occurrence: None)
  Receive Date: 20090423
  Receipt Date: 20090416
  Transmission Date: 20091009
  Serious: Yes (Other)
  Sender: FDA-Public Use
  Company Number: US-PFIZER INC-2009174243

PATIENT
  Sex: Female
  Weight: 58.503 kg

DRUGS (18)
  1. HYDROXYZINE HCL [Suspect]
     Indication: PLEURISY
     Dosage: UNK
     Dates: start: 20090219, end: 20090222
  2. PERCOCET [Concomitant]
  3. PRILOSEC [Concomitant]
  4. ZOCOR [Concomitant]
  5. PROCHLORPERAZINE [Concomitant]
  6. TOPROL-XL [Concomitant]
  7. ROBAXIN [Concomitant]
  8. MOBIC [Concomitant]
  9. LYRICA [Concomitant]
  10. ASCORBIC ACID [Concomitant]
  11. ASPIRIN [Concomitant]
  12. LEVAQUIN [Concomitant]
  13. ADVAIR HFA [Concomitant]
  14. BENADRYL [Concomitant]
  15. SUDAFED 12 HOUR [Concomitant]
  16. FLOMAX ^CSL^ [Concomitant]
  17. PROVENTIL HFA ^WHITE DIVISION^ [Concomitant]
  18. ACIDOPHILUS [Concomitant]

REACTIONS (1)
  - BLOOD PRESSURE FLUCTUATION [None]
